FAERS Safety Report 14286047 (Version 1)
Quarter: 2017Q4

REPORT INFORMATION
  Report Type: Spontaneous
  Country: US (occurrence: US)
  Receive Date: 20171214
  Receipt Date: 20171214
  Transmission Date: 20180321
  Serious: No
  Sender: FDA-Public Use
  Company Number: US-ASTELLAS-2017US028291

PATIENT
  Sex: Female

DRUGS (1)
  1. TARCEVA [Suspect]
     Active Substance: ERLOTINIB HYDROCHLORIDE
     Indication: LUNG NEOPLASM MALIGNANT
     Route: 048
     Dates: start: 20160916

REACTIONS (6)
  - Traumatic haemorrhage [Unknown]
  - Skin fissures [Unknown]
  - Dry skin [Unknown]
  - Erythema [Unknown]
  - Peripheral swelling [Unknown]
  - Limb mass [Unknown]
